FAERS Safety Report 9417224 (Version 1)
Quarter: 2013Q3

REPORT INFORMATION
  Report Type: Spontaneous
  Country: US (occurrence: US)
  Receive Date: 20130724
  Receipt Date: 20130724
  Transmission Date: 20140515
  Serious: No
  Sender: FDA-Public Use
  Company Number: US-BAUSCH-BL-2013-003445

PATIENT
  Age: 43 Year
  Sex: Female
  Weight: 64.92 kg

DRUGS (1)
  1. OPCON-A [Suspect]
     Indication: EYE ALLERGY
     Dosage: ONE DROP; OPHTHALMIC
     Route: 047
     Dates: start: 20130523, end: 20130524

REACTIONS (1)
  - Vision blurred [Recovered/Resolved]
